FAERS Safety Report 5265467-8 (Version None)
Quarter: 2007Q1

REPORT INFORMATION
  Report Type: 
  Country: None (occurrence: None)
  Receive Date: 20070314
  Receipt Date: 20070302
  Transmission Date: 20070707
  Serious: Yes (Other)
  Sender: FDA-Public Use
  Company Number: GB-PFIZER INC-2006141267

PATIENT
  Age: 83 Year
  Sex: Male
  Weight: 67 kg

DRUGS (2)
  1. ISTIN [Suspect]
     Indication: HYPERTENSION
     Route: 048
  2. LISINOPRIL [Concomitant]
     Indication: HYPERTENSION
     Route: 048

REACTIONS (4)
  - ALBUMINURIA [None]
  - DIABETES MELLITUS [None]
  - DIABETIC NEPHROPATHY [None]
  - GLYCOSYLATED HAEMOGLOBIN INCREASED [None]
